FAERS Safety Report 7003806-8 (Version None)
Quarter: 2010Q3

REPORT INFORMATION
  Report Type: 
  Country: None (occurrence: None)
  Receive Date: 20100920
  Receipt Date: 20091204
  Transmission Date: 20110219
  Serious: No
  Sender: FDA-Public Use
  Company Number: US-WYE-H12529709

PATIENT
  Sex: Female
  Weight: 78.54 kg

DRUGS (9)
  1. PRISTIQ [Suspect]
     Indication: DEPRESSION
     Dosage: 1.5 TABLETS DAILY AS DIRECTED BY HER PHYSICIAN
     Route: 048
     Dates: start: 20091127
  2. TRAZODONE HCL [Concomitant]
  3. ZOLPIDEM [Concomitant]
  4. ALPRAZOLAM [Concomitant]
  5. NEXIUM [Concomitant]
  6. ACTOS [Concomitant]
  7. ATENOLOL [Concomitant]
  8. TRICOR [Concomitant]
  9. JANUVIA [Concomitant]

REACTIONS (1)
  - FAECES PALE [None]
